FAERS Safety Report 9289860 (Version 2)
Quarter: 2013Q2

REPORT INFORMATION
  Report Type: Spontaneous
  Country: JP (occurrence: JP)
  Receive Date: 20130515
  Receipt Date: 20130521
  Transmission Date: 20140414
  Serious: Yes (Other)
  Sender: FDA-Public Use
  Company Number: PHHY2013JP047835

PATIENT
  Age: 80 Year
  Sex: Female

DRUGS (5)
  1. TEGRETOL [Suspect]
     Dosage: UNK UKN, UNK
     Route: 048
  2. PREDONINE [Concomitant]
  3. JZOLOFT [Concomitant]
     Dosage: UNK UKN, UNK
     Route: 048
  4. HIBON [Concomitant]
     Dosage: UNK UKN, UNK
     Route: 048
  5. U PAN [Concomitant]
     Dosage: UNK UKN, UNK
     Route: 048

REACTIONS (4)
  - Gynaecomastia [Unknown]
  - Breast pain [Unknown]
  - Musculoskeletal stiffness [Unknown]
  - Back pain [Unknown]
